FAERS Safety Report 19065139 (Version 2)
Quarter: 2021Q2

REPORT INFORMATION
  Report Type: Spontaneous
  Country: TH (occurrence: TH)
  Receive Date: 20210327
  Receipt Date: 20210407
  Transmission Date: 20210717
  Serious: Yes (Life-Threatening, Hospitalization, Other)
  Sender: FDA-Public Use
  Company Number: TH-009507513-2103THA006401

PATIENT
  Sex: Male
  Weight: 66 kg

DRUGS (7)
  1. MARCAIN [Concomitant]
     Active Substance: BUPIVACAINE HYDROCHLORIDE
     Dosage: BOLUS, 5 ML/HR
  2. PROPOFOL. [Concomitant]
     Active Substance: PROPOFOL
     Dosage: 200 (UNIT WAS NOT REPORTED)
     Dates: start: 20210304, end: 20210304
  3. ESMERON [Concomitant]
     Active Substance: ROCURONIUM BROMIDE
     Dosage: 220 (UNITS NOT REPORTED)
     Dates: start: 20210304, end: 20210304
  4. MARCAIN [Concomitant]
     Active Substance: BUPIVACAINE HYDROCHLORIDE
     Dosage: BOLUS, 5 ML/HR
  5. BRIDION [Suspect]
     Active Substance: SUGAMMADEX
     Indication: NEUROMUSCULAR BLOCKADE REVERSAL
     Dosage: 200 MILLIGRAM, ONCE
     Route: 042
     Dates: start: 20210304, end: 20210304
  6. DESFLURANE. [Concomitant]
     Active Substance: DESFLURANE
     Indication: GENERAL ANAESTHESIA
     Dosage: DESFLURANE WITH TITRATE DOSE
     Dates: start: 20210304, end: 20210304
  7. ROCEPHIN [Concomitant]
     Active Substance: CEFTRIAXONE SODIUM
     Dosage: 2 GRAM, ONCE
     Route: 042
     Dates: start: 20210304, end: 20210304

REACTIONS (4)
  - Angioedema [Recovered/Resolved]
  - Rash [Recovered/Resolved]
  - Respiratory failure [Recovered/Resolved]
  - Laryngeal oedema [Recovered/Resolved]

NARRATIVE: CASE EVENT DATE: 20210304
